FAERS Safety Report 5020262-X (Version None)
Quarter: 2006Q2

REPORT INFORMATION
  Report Type: 
  Country: None (occurrence: None)
  Receive Date: 20060602
  Receipt Date: 20060512
  Transmission Date: 20061013
  Serious: Yes (Other)
  Sender: FDA-Public Use
  Company Number: SE200605002973

PATIENT
  Age: 46 Year
  Sex: Female
  Weight: 80 kg

DRUGS (2)
  1. ZYPREXA [Suspect]
     Indication: BIPOLAR I DISORDER
     Dosage: 5 MG, DAILY (1/D), ORAL
     Route: 048
     Dates: start: 20030901
  2. LITHIUM (LITHIUM) [Concomitant]

REACTIONS (4)
  - CEREBRAL INFARCTION [None]
  - HEMIANOPIA [None]
  - THROMBOSIS [None]
  - VISUAL ACUITY REDUCED [None]
